FAERS Safety Report 5190430-5 (Version None)
Quarter: 2006Q4

REPORT INFORMATION
  Report Type: 
  Country: None (occurrence: None)
  Receive Date: 20061222
  Receipt Date: 20061214
  Transmission Date: 20070319
  Serious: Yes (Hospitalization)
  Sender: FDA-Public Use
  Company Number: US-ELI_LILLY_AND_COMPANY-US200612002534

PATIENT
  Age: 33 Year
  Sex: Female

DRUGS (2)
  1. CYMBALTA [Suspect]
     Indication: DEPRESSION
     Dosage: 60 MG, DAILY (1/D)
  2. LAMICTAL [Concomitant]

REACTIONS (5)
  - ALCOHOL USE [None]
  - HYPERTONIA [None]
  - MUSCLE SPASTICITY [None]
  - OVERDOSE [None]
  - RESPIRATORY DISORDER [None]
